FAERS Safety Report 8249905-4 (Version None)
Quarter: 2012Q2

REPORT INFORMATION
  Report Type: 
  Country: None (occurrence: None)
  Receive Date: 20120402
  Receipt Date: 20120326
  Transmission Date: 20120825
  Serious: Yes (Hospitalization)
  Sender: FDA-Public Use
  Company Number: PHHY2012IT026799

PATIENT
  Sex: Female

DRUGS (3)
  1. VOLTAREN [Suspect]
     Dosage: 75 MG, UNK
     Route: 030
     Dates: start: 20111009, end: 20111009
  2. CAPOTEN [Concomitant]
     Dosage: 25 MG, UNK
     Route: 048
     Dates: start: 20060428, end: 20111009
  3. DAPAROX (PAROXETINE MESILATE) [Concomitant]
     Dosage: 20 MG, UNK
     Dates: start: 20091020, end: 20111009

REACTIONS (5)
  - COUGH [None]
  - HYPERTENSION [None]
  - DYSPHAGIA [None]
  - PALATAL OEDEMA [None]
  - REFLUX LARYNGITIS [None]
